FAERS Safety Report 18342673 (Version 1)
Quarter: 2020Q4

REPORT INFORMATION
  Report Type: Spontaneous
  Country: CN (occurrence: CN)
  Receive Date: 20201005
  Receipt Date: 20201005
  Transmission Date: 20210113
  Serious: Yes (Hospitalization, Other)
  Sender: FDA-Public Use
  Company Number: CN-LUPIN PHARMACEUTICALS INC.-2020-06682

PATIENT
  Age: 77 Year
  Sex: Female

DRUGS (1)
  1. DECITABINE. [Suspect]
     Active Substance: DECITABINE
     Indication: ACUTE MYELOID LEUKAEMIA
     Dosage: 25 MILLIGRAM, QD (15.9MG/M2)
     Route: 065

REACTIONS (5)
  - Urinary tract infection [Recovered/Resolved]
  - Myelosuppression [Recovered/Resolved]
  - Mucosal haemorrhage [Recovered/Resolved]
  - Respiratory tract infection [Recovered/Resolved]
  - Skin haemorrhage [Recovered/Resolved]
